FAERS Safety Report 4713122-2 (Version None)
Quarter: 2005Q3

REPORT INFORMATION
  Report Type: 
  Country: None (occurrence: None)
  Receive Date: 20050701
  Receipt Date: 20041020
  Transmission Date: 20060218
  Serious: Yes (Other)
  Sender: FDA-Public Use
  Company Number: 2004081660

PATIENT
  Age: 60 Year
  Sex: Female
  Weight: 75.2971 kg

DRUGS (4)
  1. ZOLOFT [Suspect]
     Indication: DIZZINESS
     Dosage: 50 MG (50 MG, 1 IN 1 D), ORAL
     Route: 048
     Dates: start: 20040812, end: 20041017
  2. LAMOTRIGINE [Concomitant]
  3. ZOLPIDEM TARTRATE [Concomitant]
  4. ALPRAZOLAM [Concomitant]

REACTIONS (14)
  - ANOREXIA [None]
  - DIARRHOEA [None]
  - DIFFICULTY IN WALKING [None]
  - FATIGUE [None]
  - HEADACHE [None]
  - HYPERHIDROSIS [None]
  - MICTURITION URGENCY [None]
  - MYOCLONUS [None]
  - NAUSEA [None]
  - PAIN [None]
  - PALPITATIONS [None]
  - PYREXIA [None]
  - RESTLESS LEGS SYNDROME [None]
  - SEROTONIN SYNDROME [None]
